FAERS Safety Report 4831358-7 (Version None)
Quarter: 2005Q4

REPORT INFORMATION
  Report Type: 
  Country: None (occurrence: None)
  Receive Date: 20051118
  Receipt Date: 20051111
  Transmission Date: 20060501
  Serious: Yes (Life-Threatening, Hospitalization)
  Sender: FDA-Public Use
  Company Number: GR-JNJFOC-20051103433

PATIENT
  Age: 45 Year
  Sex: Male

DRUGS (3)
  1. ACETAMINOPHEN [Suspect]
  2. ACETAMINOPHEN [Suspect]
     Indication: VIRAL INFECTION
  3. MEFENAMIC ACID [Suspect]
     Indication: VIRAL INFECTION

REACTIONS (1)
  - TOXIC EPIDERMAL NECROLYSIS [None]
